FAERS Safety Report 9416491 (Version 1)
Quarter: 2013Q3

REPORT INFORMATION
  Report Type: Spontaneous
  Country: US (occurrence: US)
  Receive Date: 20130719
  Receipt Date: 20130719
  Transmission Date: 20140515
  Serious: Yes (Other)
  Sender: FDA-Public Use
  Company Number: VAL_02637_2013

PATIENT
  Age: 61 Year
  Sex: Female

DRUGS (1)
  1. BENAZEPRIL [Suspect]
     Indication: PRODUCT USED FOR UNKNOWN INDICATION
     Dosage: 1 DF
     Dates: start: 201306

REACTIONS (9)
  - Malaise [None]
  - Blood pressure increased [None]
  - Dizziness [None]
  - Dyspnoea [None]
  - Tinnitus [None]
  - Presyncope [None]
  - Hypertension [None]
  - Drug ineffective [None]
  - Product quality issue [None]
